FAERS Safety Report 24213267 (Version 3)
Quarter: 2024Q4

REPORT INFORMATION
  Report Type: Spontaneous
  Country: US (occurrence: US)
  Receive Date: 20240815
  Receipt Date: 20241031
  Transmission Date: 20250115
  Serious: Yes (Other)
  Sender: PFIZER
  Company Number: US-PFIZER INC-202400236353

PATIENT
  Age: 41 Year
  Sex: Male

DRUGS (1)
  1. EUCRISA [Suspect]
     Active Substance: CRISABOROLE
     Indication: Dermatitis atopic
     Dosage: UNK
     Route: 061

REACTIONS (4)
  - Eczema infected [Recovering/Resolving]
  - Bacterial infection [Recovering/Resolving]
  - Skin fissures [Unknown]
  - Treatment failure [Unknown]
